FAERS Safety Report 7962094-6 (Version None)
Quarter: 2011Q4

REPORT INFORMATION
  Report Type: 
  Country: None (occurrence: None)
  Receive Date: 20111207
  Receipt Date: 20111201
  Transmission Date: 20120403
  Serious: Yes (Hospitalization)
  Sender: FDA-Public Use
  Company Number: FR-BRISTOL-MYERS SQUIBB COMPANY-16268997

PATIENT
  Age: 65 Year
  Sex: Male

DRUGS (2)
  1. CETUXIMAB [Suspect]
     Indication: NEOPLASM
     Dosage: 3NOV11 366MG 10NOV11 360MG
     Route: 042
     Dates: start: 20111103, end: 20111110
  2. TEMSIROLIMUS [Suspect]
     Indication: NEOPLASM
     Route: 042
     Dates: start: 20111103, end: 20111110

REACTIONS (2)
  - THROMBOSIS [None]
  - PULMONARY EMBOLISM [None]
